FAERS Safety Report 5305929-8 (Version None)
Quarter: 2007Q2

REPORT INFORMATION
  Report Type: 
  Country: None (occurrence: None)
  Receive Date: 20070424
  Receipt Date: 20070416
  Transmission Date: 20071010
  Serious: Yes (Hospitalization)
  Sender: FDA-Public Use
  Company Number: 491864

PATIENT
  Age: 63 Year
  Sex: Male

DRUGS (3)
  1. CARVEDILOL [Suspect]
     Indication: HYPERTENSION
     Dosage: 12.5MG TWICE PER DAY
     Route: 048
     Dates: start: 20051216, end: 20060601
  2. MYKROX [Suspect]
     Indication: HYPERTENSION
     Dosage: .5MG PER DAY
     Route: 048
     Dates: start: 20051216, end: 20060601
  3. MICARDIS [Suspect]
     Indication: HYPERTENSION
     Dosage: 40MG TWICE PER DAY
     Route: 048
     Dates: start: 20060412, end: 20060601

REACTIONS (3)
  - BLOOD GLUCOSE INCREASED [None]
  - FAECAL INCONTINENCE [None]
  - VERTIGO POSITIONAL [None]
